FAERS Safety Report 7520719-3 (Version None)
Quarter: 2011Q2

REPORT INFORMATION
  Report Type: 
  Country: None (occurrence: None)
  Receive Date: 20110603
  Receipt Date: 20101123
  Transmission Date: 20111010
  Serious: Yes (Disabling)
  Sender: FDA-Public Use
  Company Number: AR-BAYER-200816038LA

PATIENT
  Sex: Female
  Weight: 70 kg

DRUGS (2)
  1. NEXAVAR [Suspect]
     Dosage: 400 MG (DAILY DOSE), BID, ORAL
     Route: 048
     Dates: start: 20071230, end: 20080128
  2. NEXAVAR [Suspect]
     Indication: RENAL CELL CARCINOMA
     Dosage: 800 MG (DAILY DOSE), BID, ORAL
     Route: 048
     Dates: start: 20070310, end: 20070101

REACTIONS (1)
  - SKIN ULCER [None]
